FAERS Safety Report 8589009-4 (Version None)
Quarter: 2012Q3

REPORT INFORMATION
  Report Type: 
  Country: None (occurrence: None)
  Receive Date: 20120731
  Receipt Date: 20120720
  Transmission Date: 20120928
  Serious: Yes (Other)
  Sender: FDA-Public Use
  Company Number: DSA_58663_2012

PATIENT

DRUGS (7)
  1. FLUOROURACIL [Suspect]
     Indication: COLORECTAL CANCER
     Dosage: 400MG/M2 INTRAVENOUS BOLUS, 2400MG/M2
  2. BEVACIZUMAB (BEVACIZUMAB) [Suspect]
     Indication: COLORECTAL CANCER
     Dosage: 5MG/KG INTRAVENOUS
     Route: 042
  3. GRANISETRON [Concomitant]
  4. DEXAMETHASONE [Concomitant]
  5. LEVOLEUCOVORIN CALCIUM [Suspect]
     Indication: COLORECTAL CANCER
     Dosage: 200MG/M2 INTRAVENOUS
     Route: 042
  6. ONDANSETRON HYDROCHLORIDE [Concomitant]
  7. IRINOTECAN HCL [Suspect]
     Indication: COLORECTAL CANCER
     Dosage: 180 MG/M2 INTRAVENOUS
     Route: 042

REACTIONS (1)
  - NEUTROPENIA [None]
